FAERS Safety Report 13889743 (Version 2)
Quarter: 2017Q4

REPORT INFORMATION
  Report Type: Report from Study
  Country: JP (occurrence: JP)
  Receive Date: 20170822
  Receipt Date: 20171016
  Transmission Date: 20180320
  Serious: Yes (Other)
  Sender: FDA-Public Use
  Company Number: JP-AMGEN-JPNNI2017127325

PATIENT
  Age: 80 Year
  Sex: Male
  Weight: 51 kg

DRUGS (35)
  1. DOXORUBICIN HYDROCHLORIDE. [Concomitant]
     Active Substance: DOXORUBICIN HYDROCHLORIDE
     Dosage: 18 MG, UNK
     Route: 041
     Dates: start: 20170518, end: 20170518
  2. DOXORUBICIN HYDROCHLORIDE. [Concomitant]
     Active Substance: DOXORUBICIN HYDROCHLORIDE
     Dosage: 18 MG, UNK
     Route: 041
     Dates: start: 20170629, end: 20170629
  3. BLEO [Concomitant]
     Active Substance: BLEOMYCIN HYDROCHLORIDE
     Dosage: 6 MG, UNK
     Route: 065
     Dates: start: 20170601, end: 20170601
  4. EMEND [Concomitant]
     Active Substance: APREPITANT
     Dosage: UNK
     Route: 048
  5. PEGFILGRASTIM [Suspect]
     Active Substance: PEGFILGRASTIM
     Dosage: 3.6 MG, UNK
     Route: 058
     Dates: start: 20170616, end: 20170616
  6. DACARBAZINE. [Suspect]
     Active Substance: DACARBAZINE
     Dosage: 270 MG, UNK
     Route: 042
     Dates: start: 20170629, end: 20170629
  7. EXAL [Concomitant]
     Active Substance: VINBLASTINE SULFATE
     Dosage: 4.3 MG, UNK
     Route: 042
     Dates: start: 20170615, end: 20170615
  8. DOXORUBICIN HYDROCHLORIDE. [Concomitant]
     Active Substance: DOXORUBICIN HYDROCHLORIDE
     Dosage: 18 MG, UNK
     Route: 041
     Dates: start: 20170427, end: 20170427
  9. BLEO [Concomitant]
     Active Substance: BLEOMYCIN HYDROCHLORIDE
     Dosage: 6 MG, UNK
     Route: 065
     Dates: start: 20170427, end: 20170427
  10. BLEO [Concomitant]
     Active Substance: BLEOMYCIN HYDROCHLORIDE
     Dosage: 6 MG, UNK
     Route: 065
     Dates: start: 20170518, end: 20170518
  11. BLEO [Concomitant]
     Active Substance: BLEOMYCIN HYDROCHLORIDE
     Dosage: 6 MG, UNK
     Route: 065
     Dates: start: 20170629, end: 20170629
  12. PEGFILGRASTIM [Suspect]
     Active Substance: PEGFILGRASTIM
     Dosage: 3.6 MG, UNK
     Route: 058
     Dates: start: 20170602, end: 20170602
  13. PEGFILGRASTIM [Suspect]
     Active Substance: PEGFILGRASTIM
     Dosage: 3.6 MG, UNK
     Route: 058
     Dates: start: 20170630, end: 20170630
  14. BLEO [Concomitant]
     Active Substance: BLEOMYCIN HYDROCHLORIDE
     Indication: HODGKIN^S DISEASE
     Dosage: 10 MG, UNK
     Route: 065
     Dates: start: 20170406, end: 20170406
  15. DAIPHEN [Concomitant]
     Active Substance: SULFAMETHOXAZOLE\TRIMETHOPRIM
     Dosage: UNK
     Route: 048
  16. AMLODIN [Concomitant]
     Active Substance: AMLODIPINE BESYLATE
     Indication: HYPERTENSION
     Dosage: UNK
     Route: 048
  17. PEGFILGRASTIM [Suspect]
     Active Substance: PEGFILGRASTIM
     Indication: COLONY STIMULATING FACTOR PROPHYLAXIS
     Dosage: 3.6 MG, UNK
     Route: 058
     Dates: start: 20170407, end: 20170407
  18. DACARBAZINE. [Suspect]
     Active Substance: DACARBAZINE
     Dosage: 270 MG, UNK
     Route: 042
     Dates: start: 20170518, end: 20170518
  19. DOXORUBICIN HYDROCHLORIDE. [Concomitant]
     Active Substance: DOXORUBICIN HYDROCHLORIDE
     Dosage: 18 MG, UNK
     Route: 041
     Dates: start: 20170601, end: 20170601
  20. DACARBAZINE. [Suspect]
     Active Substance: DACARBAZINE
     Dosage: 270 MG, UNK
     Route: 042
     Dates: start: 20170601, end: 20170601
  21. EXAL [Concomitant]
     Active Substance: VINBLASTINE SULFATE
     Dosage: 4.3 MG, UNK
     Route: 042
     Dates: start: 20170427, end: 20170427
  22. DOXORUBICIN HYDROCHLORIDE. [Concomitant]
     Active Substance: DOXORUBICIN HYDROCHLORIDE
     Indication: HODGKIN^S DISEASE
     Dosage: 27 MG, UNK
     Route: 041
     Dates: start: 20170406, end: 20170406
  23. DACARBAZINE. [Suspect]
     Active Substance: DACARBAZINE
     Dosage: 270 MG, UNK
     Route: 042
     Dates: start: 20170427, end: 20170427
  24. EXAL [Concomitant]
     Active Substance: VINBLASTINE SULFATE
     Dosage: 4.3 MG, UNK
     Route: 042
     Dates: start: 20170629, end: 20170629
  25. DOXORUBICIN HYDROCHLORIDE. [Concomitant]
     Active Substance: DOXORUBICIN HYDROCHLORIDE
     Dosage: 18 MG, UNK
     Route: 041
     Dates: start: 20170615, end: 20170615
  26. DEXART [Concomitant]
     Active Substance: DEXAMETHASONE SODIUM PHOSPHATE
     Dosage: UNK
     Route: 065
  27. PEGFILGRASTIM [Suspect]
     Active Substance: PEGFILGRASTIM
     Dosage: 3.6 MG, UNK
     Route: 058
     Dates: start: 20170428, end: 20170428
  28. PEGFILGRASTIM [Suspect]
     Active Substance: PEGFILGRASTIM
     Dosage: 3.6 MG, UNK
     Route: 058
     Dates: start: 20170519, end: 20170519
  29. DACARBAZINE. [Suspect]
     Active Substance: DACARBAZINE
     Indication: HODGKIN^S DISEASE
     Dosage: 400 MG, UNK
     Route: 042
     Dates: start: 20170406, end: 20170406
  30. DACARBAZINE. [Suspect]
     Active Substance: DACARBAZINE
     Dosage: 270 MG, UNK
     Route: 042
     Dates: start: 20170615, end: 20170615
  31. EXAL [Concomitant]
     Active Substance: VINBLASTINE SULFATE
     Indication: HODGKIN^S DISEASE
     Dosage: 6.4 MG, UNK
     Route: 042
     Dates: start: 20170406, end: 20170406
  32. EXAL [Concomitant]
     Active Substance: VINBLASTINE SULFATE
     Dosage: 4.3 MG, UNK
     Route: 042
     Dates: start: 20170518, end: 20170518
  33. EXAL [Concomitant]
     Active Substance: VINBLASTINE SULFATE
     Dosage: 4.3 MG, UNK
     Route: 042
     Dates: start: 20170601, end: 20170601
  34. BLEO [Concomitant]
     Active Substance: BLEOMYCIN HYDROCHLORIDE
     Dosage: 6 MG, UNK
     Route: 065
     Dates: start: 20170615, end: 20170615
  35. GRANISETRON [Concomitant]
     Active Substance: GRANISETRON
     Dosage: UNK
     Route: 041

REACTIONS (2)
  - Chemotherapy [Unknown]
  - Malaise [Recovering/Resolving]

NARRATIVE: CASE EVENT DATE: 20170420
